FAERS Safety Report 7349748-X (Version None)
Quarter: 2011Q1

REPORT INFORMATION
  Report Type: 
  Country: None (occurrence: None)
  Receive Date: 20110314
  Receipt Date: 20110308
  Transmission Date: 20110831
  Serious: Yes (Hospitalization)
  Sender: FDA-Public Use
  Company Number: TR-ASTRAZENECA-2011SE12768

PATIENT
  Age: 4 Year
  Sex: Male

DRUGS (3)
  1. MOMETASONE FUROATE [Concomitant]
     Indication: NASAL CONGESTION
     Route: 045
  2. SYSTEMIC CORTICOSTEROIDS [Concomitant]
     Indication: ASTHMA
  3. BUDESONIDE [Suspect]
     Indication: ASTHMA
     Dosage: 1000 UG
     Route: 055

REACTIONS (2)
  - CATARACT SUBCAPSULAR [None]
  - WRONG TECHNIQUE IN DRUG USAGE PROCESS [None]
